FAERS Safety Report 5031722-X (Version None)
Quarter: 2006Q2

REPORT INFORMATION
  Report Type: 
  Country: None (occurrence: None)
  Receive Date: 20060616
  Receipt Date: 20060530
  Transmission Date: 20061013
  Serious: Yes (Hospitalization)
  Sender: FDA-Public Use
  Company Number: US200603000267

PATIENT
  Sex: Female
  Weight: 62.6 kg

DRUGS (1)
  1. ZYPREXA [Suspect]
     Dosage: 15 MG, ORAL
     Route: 048
     Dates: start: 20030501, end: 20030801

REACTIONS (3)
  - DIABETES MELLITUS [None]
  - RECTAL HAEMORRHAGE [None]
  - WEIGHT INCREASED [None]
